FAERS Safety Report 5375281-0 (Version None)
Quarter: 2007Q2

REPORT INFORMATION
  Report Type: 
  Country: None (occurrence: None)
  Receive Date: 20070629
  Receipt Date: 20060905
  Transmission Date: 20071010
  Serious: No
  Sender: FDA-Public Use
  Company Number: US-ASTRAZENECA-2006UW17506

PATIENT
  Age: 63 Year
  Sex: Female
  Weight: 71.7 kg

DRUGS (2)
  1. TAMOXIFEN CITRATE [Suspect]
     Indication: BREAST CANCER FEMALE
     Route: 048
     Dates: end: 20060101
  2. CALCIUM CHLORIDE [Concomitant]

REACTIONS (1)
  - WEIGHT INCREASED [None]
